FAERS Safety Report 17411748 (Version 6)
Quarter: 2021Q1

REPORT INFORMATION
  Report Type: Spontaneous
  Country: DE (occurrence: DE)
  Receive Date: 20200213
  Receipt Date: 20210210
  Transmission Date: 20210419
  Serious: Yes (Life-Threatening, Hospitalization, Disabling, Other)
  Sender: FDA-Public Use
  Company Number: DE-SA-2020SA034879

PATIENT
  Age: 78 Year
  Sex: Male
  Weight: 90 kg

DRUGS (38)
  1. DUPIXENT [Suspect]
     Active Substance: DUPILUMAB
     Dosage: 300 MG, QOW
     Route: 058
     Dates: start: 20190910
  2. DUPIXENT [Suspect]
     Active Substance: DUPILUMAB
     Dosage: UNK
     Dates: end: 201912
  3. TAMSULOSIN [Concomitant]
     Active Substance: TAMSULOSIN
     Indication: BENIGN PROSTATIC HYPERPLASIA
     Dosage: 0.4 MG, QD
     Route: 048
  4. PREDNISOLONE. [Concomitant]
     Active Substance: PREDNISOLONE
     Dosage: 25 MG, QD
  5. PREDNISOLONE. [Concomitant]
     Active Substance: PREDNISOLONE
     Dosage: 6 MG
  6. MOMECUTAN [Concomitant]
     Active Substance: MOMETASONE FUROATE
     Dosage: 1 DF, QW
     Route: 061
  7. DUPIXENT [Suspect]
     Active Substance: DUPILUMAB
     Dosage: 300 MG, QOW
     Route: 058
     Dates: start: 20190827
  8. IBUPROFEN. [Concomitant]
     Active Substance: IBUPROFEN
     Indication: ARTHRALGIA
     Dosage: UNK
  9. DUPIXENT [Suspect]
     Active Substance: DUPILUMAB
     Indication: NEURODERMATITIS
     Dosage: 600 MG, 1X
     Route: 058
     Dates: start: 20190506, end: 20190506
  10. DUPIXENT [Suspect]
     Active Substance: DUPILUMAB
     Dosage: 200 MG, QOW
     Route: 058
     Dates: start: 20191021
  11. DUPIXENT [Suspect]
     Active Substance: DUPILUMAB
     Dosage: 300 MG, QOW
     Route: 058
     Dates: start: 20191203, end: 20200103
  12. RAMIPRIL. [Suspect]
     Active Substance: RAMIPRIL
     Dosage: UNK
  13. METAMIZOLE [Concomitant]
     Active Substance: METAMIZOLE
     Indication: PAIN
     Dosage: 20 ? 20 ? 20 ? 20 DROPS, QD
     Route: 048
     Dates: start: 201912
  14. MOMECUTAN [Concomitant]
     Active Substance: MOMETASONE FUROATE
     Indication: DERMATITIS ATOPIC
     Dosage: 2 DF, QW
     Route: 061
  15. ATORBEM [Concomitant]
     Dosage: 0 ? 0 ? 1 TABLETS, QD
  16. DECORTIN?H [PREDNISOLONE] [Concomitant]
     Active Substance: PREDNISOLONE
     Dosage: 1 ? 0 ? 0 TABLETS DAILY, QD
  17. GABAPENTIN. [Concomitant]
     Active Substance: GABAPENTIN
     Dosage: UNK
  18. DUPIXENT [Suspect]
     Active Substance: DUPILUMAB
     Dosage: 300 MG, QOW
     Route: 058
     Dates: start: 20190520
  19. DUPIXENT [Suspect]
     Active Substance: DUPILUMAB
     Dosage: 300 MG, QOW
     Route: 058
     Dates: start: 20190603
  20. PREDNISOLONE. [Concomitant]
     Active Substance: PREDNISOLONE
     Dosage: 5 MG, QD
  21. PANTOPRAZOLE [Concomitant]
     Active Substance: PANTOPRAZOLE
     Indication: GASTROINTESTINAL DISORDER PROPHYLAXIS
     Dosage: 20 MG, QD
     Route: 048
  22. ASPIRIN [ACETYLSALICYLIC ACID] [Concomitant]
     Active Substance: ASPIRIN
     Dosage: 1 DF
  23. DUPIXENT [Suspect]
     Active Substance: DUPILUMAB
     Indication: DERMATITIS ATOPIC
     Dosage: UNK
     Dates: start: 201904
  24. DUPIXENT [Suspect]
     Active Substance: DUPILUMAB
     Dosage: 200 MG, QOW
     Route: 058
     Dates: start: 20191119
  25. PREDNISOLONE. [Concomitant]
     Active Substance: PREDNISOLONE
     Dosage: 13.5 MG
  26. ATORVASTATIN [Concomitant]
     Active Substance: ATORVASTATIN
     Indication: HYPOLIPIDAEMIA
     Dosage: 20 MG, QD
     Route: 048
  27. PREGABALIN. [Concomitant]
     Active Substance: PREGABALIN
     Indication: NEUROLOGICAL SYMPTOM
     Dosage: UNK UNK, QD
     Route: 048
     Dates: start: 201912
  28. ASPIRIN. [Concomitant]
     Active Substance: ASPIRIN
     Dosage: 100 MG
  29. PREDNISOLONE. [Concomitant]
     Active Substance: PREDNISOLONE
     Indication: DERMATITIS ATOPIC
     Dosage: 6 MG, QD
     Route: 048
  30. PREDNISOLONE. [Concomitant]
     Active Substance: PREDNISOLONE
     Dosage: 7.5 MG, QD
     Dates: start: 2019
  31. PREDNISOLONE. [Concomitant]
     Active Substance: PREDNISOLONE
     Dosage: 15 MG, QD
     Dates: start: 2019
  32. PREGABALIN. [Concomitant]
     Active Substance: PREGABALIN
     Indication: NEURALGIA
  33. MOMECUTAN [Concomitant]
     Active Substance: MOMETASONE FUROATE
     Dosage: UNK, QOD FOR 1 WEEK
  34. FENISTIL [Concomitant]
     Active Substance: DIMETHINDENE
     Dosage: UNK UNK, PRN
  35. DECORTIN?H [PREDNISOLONE] [Concomitant]
     Active Substance: PREDNISOLONE
     Dosage: 1 ? 0 ? 0 TABLETS DAILY, QD
  36. DUPIXENT [Suspect]
     Active Substance: DUPILUMAB
     Dosage: 300 MG, QOW
     Route: 058
     Dates: start: 201907
  37. DUPIXENT [Suspect]
     Active Substance: DUPILUMAB
     Dosage: 200 MG, QOW
     Route: 058
     Dates: start: 20191105
  38. SILONDA [Concomitant]
     Dosage: 1 DF

REACTIONS (30)
  - Disorientation [Recovered/Resolved]
  - Pruritus [Unknown]
  - Febrile infection [Unknown]
  - Memory impairment [Unknown]
  - Skin atrophy [Unknown]
  - Pain [Unknown]
  - Hallucination, visual [Unknown]
  - Nausea [Unknown]
  - Hypoaesthesia [Unknown]
  - Agitation [Unknown]
  - Meningitis [Unknown]
  - Vasculitis [Unknown]
  - Hallucination [Recovered/Resolved]
  - Pyrexia [Recovered/Resolved]
  - Organic brain syndrome [Unknown]
  - Fatigue [Unknown]
  - Intervertebral disc operation [Unknown]
  - Confusional state [Unknown]
  - Neuralgia [Unknown]
  - Dermatitis atopic [Unknown]
  - Vomiting [Unknown]
  - Hypoacusis [Unknown]
  - Incorrect route of product administration [Unknown]
  - Myalgia [Recovered/Resolved]
  - Hyporeflexia [Unknown]
  - Drug ineffective [Unknown]
  - Autoimmune encephalopathy [Recovered/Resolved]
  - Personality change [Recovered/Resolved]
  - Brain oedema [Unknown]
  - Aphasia [Unknown]

NARRATIVE: CASE EVENT DATE: 201906
